FAERS Safety Report 19714839 (Version 4)
Quarter: 2021Q4

REPORT INFORMATION
  Report Type: Spontaneous
  Country: US (occurrence: US)
  Receive Date: 20210818
  Receipt Date: 20211107
  Transmission Date: 20220303
  Serious: Yes (Other)
  Sender: FDA-Public Use
  Company Number: US-SA-SAC20210812001033

PATIENT
  Age: 1 Year
  Sex: Male

DRUGS (4)
  1. ALPROLIX [Suspect]
     Active Substance: EFTRENONACOG ALFA
     Indication: Factor IX deficiency
     Dosage: 1600 IU, QW
     Route: 042
     Dates: start: 20210504, end: 202109
  2. ALPROLIX [Suspect]
     Active Substance: EFTRENONACOG ALFA
     Indication: Factor IX deficiency
     Dosage: 1600 IU, QW
     Route: 042
     Dates: start: 20210504, end: 202109
  3. ALPROLIX [Suspect]
     Active Substance: EFTRENONACOG ALFA
     Dosage: 1600 IU, TIW
     Route: 042
     Dates: start: 202109
  4. ALPROLIX [Suspect]
     Active Substance: EFTRENONACOG ALFA
     Dosage: 1600 IU, TIW
     Route: 042
     Dates: start: 202109

REACTIONS (7)
  - Haemorrhage intracranial [Unknown]
  - Fall [Unknown]
  - Ear infection [Unknown]
  - Nasopharyngitis [Unknown]
  - Head injury [Unknown]
  - Limb injury [Unknown]
  - Mass [Unknown]

NARRATIVE: CASE EVENT DATE: 20210101
